FAERS Safety Report 6038333-8 (Version None)
Quarter: 2009Q1

REPORT INFORMATION
  Report Type: 
  Country: None (occurrence: None)
  Receive Date: 20090113
  Receipt Date: 20090113
  Transmission Date: 20090719
  Serious: Yes (Other)
  Sender: FDA-Public Use
  Company Number: None

PATIENT
  Age: 50 Year
  Sex: Male
  Weight: 145.1 kg

DRUGS (2)
  1. OTRIVIN [Suspect]
     Indication: NASAL CONGESTION
     Dosage: 1 SPRAY, 4 TO 6 TIMES A DAY, NASAL
     Route: 045
     Dates: start: 19830101
  2. NASONEX [Concomitant]

REACTIONS (12)
  - ANXIETY [None]
  - DIZZINESS [None]
  - DYSPNOEA [None]
  - GENERAL PHYSICAL HEALTH DETERIORATION [None]
  - HEART RATE IRREGULAR [None]
  - INAPPROPRIATE SCHEDULE OF DRUG ADMINISTRATION [None]
  - INTENTIONAL DRUG MISUSE [None]
  - NERVOUSNESS [None]
  - RESTLESSNESS [None]
  - SLEEP DISORDER [None]
  - VISION BLURRED [None]
  - WHEEZING [None]
